FAERS Safety Report 25773500 (Version 5)
Quarter: 2025Q4

REPORT INFORMATION
  Report Type: Report from Study
  Country: JP (occurrence: JP)
  Receive Date: 20250908
  Receipt Date: 20251201
  Transmission Date: 20260117
  Serious: Yes (Death)
  Sender: ROCHE
  Company Number: JP-CHUGAI-2025028322

PATIENT
  Age: 83 Year
  Sex: Female

DRUGS (3)
  1. LUNSUMIO [Suspect]
     Active Substance: MOSUNETUZUMAB-AXGB
     Indication: Follicular lymphoma refractory
     Dosage: 1 MILLIGRAM
     Route: 042
     Dates: start: 20250813, end: 20250813
  2. LUNSUMIO [Suspect]
     Active Substance: MOSUNETUZUMAB-AXGB
     Indication: Follicular lymphoma recurrent
     Dosage: 2 MILLIGRAM
     Route: 042
     Dates: start: 20250820, end: 20250820
  3. LUNSUMIO [Suspect]
     Active Substance: MOSUNETUZUMAB-AXGB
     Dosage: 60 MILLIGRAM
     Route: 042
     Dates: start: 20250827, end: 20250827

REACTIONS (2)
  - Gastrointestinal perforation [Fatal]
  - Disease progression [Fatal]

NARRATIVE: CASE EVENT DATE: 20250831
